FAERS Safety Report 6509345-2 (Version None)
Quarter: 2009Q4

REPORT INFORMATION
  Report Type: 
  Country: None (occurrence: None)
  Receive Date: 20091218
  Receipt Date: 20091218
  Transmission Date: 20100525
  Serious: Yes (Other)
  Sender: FDA-Public Use
  Company Number: None

PATIENT
  Age: 69 Year
  Sex: Female
  Weight: 68.4 kg

DRUGS (7)
  1. IPILIMUMAB [Suspect]
     Indication: MALIGNANT MELANOMA
     Dosage: 10MG/KG
     Dates: start: 20090611, end: 20091109
  2. BEVACIZUMAB [Suspect]
     Indication: MALIGNANT MELANOMA
     Dosage: 7MG/KG
     Dates: start: 20090611, end: 20091109
  3. HYDROCORTISONE [Concomitant]
  4. SYNTHROID [Concomitant]
  5. PRILOSEC [Concomitant]
  6. VITAMIN D [Concomitant]
  7. EUCERIN CREAM [Concomitant]

REACTIONS (2)
  - DEEP VEIN THROMBOSIS [None]
  - PAIN IN EXTREMITY [None]
